FAERS Safety Report 4936753-3 (Version None)
Quarter: 2006Q1

REPORT INFORMATION
  Report Type: 
  Country: None (occurrence: None)
  Receive Date: 20060302
  Receipt Date: 20060217
  Transmission Date: 20060701
  Serious: Yes (Other)
  Sender: FDA-Public Use
  Company Number: HQWYE042228FEB06

PATIENT
  Sex: Female

DRUGS (5)
  1. PREMPRO [Suspect]
  2. CYCRIN [Suspect]
  3. ESTROGENS (ESTROGENS) [Suspect]
  4. PREMARIN [Suspect]
  5. PROVERA [Suspect]

REACTIONS (4)
  - ASTHMA [None]
  - BREAST CANCER FEMALE [None]
  - CONDITION AGGRAVATED [None]
  - HORMONE LEVEL ABNORMAL [None]
